FAERS Safety Report 7620901-0 (Version None)
Quarter: 2011Q3

REPORT INFORMATION
  Report Type: 
  Country: None (occurrence: None)
  Receive Date: 20110719
  Receipt Date: 20110708
  Transmission Date: 20111222
  Serious: Yes (Hospitalization, Other)
  Sender: FDA-Public Use
  Company Number: US-BAYER-2011-043646

PATIENT
  Age: 24 Year
  Sex: Female
  Weight: 49.887 kg

DRUGS (6)
  1. TORADOL [Concomitant]
     Indication: PAIN
     Dosage: 30 MG, UNK
  2. YAZ [Suspect]
     Indication: OVARIAN CYST
     Dosage: UNK
     Dates: start: 20081202, end: 20091229
  3. NAPROXEN [Concomitant]
     Dosage: 375 MG, UNK
     Route: 048
     Dates: start: 20081028
  4. LEVAQUIN [Concomitant]
     Dosage: 750 MG, UNK
     Route: 048
     Dates: start: 20081118
  5. TRITAL SR [Concomitant]
     Dosage: UNK
     Route: 048
     Dates: start: 20081118
  6. YAZ [Suspect]
     Indication: CONTRACEPTION
     Dosage: UNK
     Dates: start: 20081001, end: 20100101

REACTIONS (3)
  - GALLBLADDER DISORDER [None]
  - GASTROINTESTINAL DISORDER [None]
  - CHOLECYSTITIS [None]
